FAERS Safety Report 7310558-0 (Version None)
Quarter: 2011Q1

REPORT INFORMATION
  Report Type: 
  Country: None (occurrence: None)
  Receive Date: 20110224
  Receipt Date: 20100105
  Transmission Date: 20110831
  Serious: No
  Sender: FDA-Public Use
  Company Number: US-BRISTOL-MYERS SQUIBB COMPANY-14912661

PATIENT
  Age: 76 Year
  Sex: Female

DRUGS (4)
  1. GLUCOPHAGE [Suspect]
     Dosage: 12-13YRS
     Dates: end: 20091101
  2. AMARYL [Suspect]
     Dosage: YEARS
     Route: 048
  3. ACTOS [Concomitant]
  4. LANTUS [Concomitant]
     Dates: start: 20091001

REACTIONS (1)
  - BLOOD CREATININE INCREASED [None]
